FAERS Safety Report 18300457 (Version 1)
Quarter: 2020Q3

REPORT INFORMATION
  Report Type: Spontaneous
  Country: US (occurrence: US)
  Receive Date: 20200923
  Receipt Date: 20200923
  Transmission Date: 20201103
  Serious: Yes (Other)
  Sender: FDA-Public Use
  Company Number: None

PATIENT
  Age: 57 Year
  Sex: Male
  Weight: 75.3 kg

DRUGS (2)
  1. DOXEPIN HCL [Suspect]
     Active Substance: DOXEPIN HYDROCHLORIDE
     Indication: INSOMNIA
     Route: 048
     Dates: start: 20200709, end: 20200710
  2. DOXEPIN HCL [Suspect]
     Active Substance: DOXEPIN HYDROCHLORIDE
     Indication: DEPRESSION
     Route: 048
     Dates: start: 20200709, end: 20200710

REACTIONS (1)
  - Dystonia [None]

NARRATIVE: CASE EVENT DATE: 20200710
